FAERS Safety Report 9569279 (Version 1)
Quarter: 2013Q3

REPORT INFORMATION
  Report Type: Spontaneous
  Country: US (occurrence: US)
  Receive Date: 20130930
  Receipt Date: 20130930
  Transmission Date: 20140515
  Serious: No
  Sender: FDA-Public Use
  Company Number: US-AMGEN-USASP2013058347

PATIENT
  Age: 51 Year
  Sex: Female
  Weight: 87.53 kg

DRUGS (7)
  1. ENBREL [Suspect]
     Indication: PSORIASIS
     Dosage: UNK
     Route: 065
     Dates: start: 2010, end: 20130731
  2. BENADRYL                           /00000402/ [Concomitant]
     Dosage: UNK
  3. FERROUS SULPHATE                   /00023503/ [Concomitant]
     Dosage: UNK
  4. LISINOPRIL [Concomitant]
     Dosage: UNK
  5. NABUMETONE [Concomitant]
     Dosage: UNK
  6. STELERA [Concomitant]
     Dosage: UNK
  7. ZEGERID                            /06027801/ [Concomitant]
     Dosage: UNK

REACTIONS (1)
  - Drug effect decreased [Not Recovered/Not Resolved]
